FAERS Safety Report 5220662-9 (Version None)
Quarter: 2007Q1

REPORT INFORMATION
  Report Type: 
  Country: None (occurrence: None)
  Receive Date: 20070126
  Receipt Date: 20070122
  Transmission Date: 20070707
  Serious: Yes (Death, Life-Threatening)
  Sender: FDA-Public Use
  Company Number: 2007CG00150

PATIENT
  Age: 3 Year
  Sex: Female

DRUGS (1)
  1. DIPRIVAN [Suspect]
     Indication: SEDATION
     Dosage: VARIABLE DOSAGE WITH MAXIMAL FLOW AT 100 MG/HOUR
     Route: 042
     Dates: start: 20050715, end: 20050719

REACTIONS (3)
  - CARDIAC FAILURE [None]
  - METABOLIC ACIDOSIS [None]
  - RHABDOMYOLYSIS [None]
